FAERS Safety Report 9148571 (Version 1)
Quarter: 2013Q1

REPORT INFORMATION
  Report Type: Spontaneous
  Country: US (occurrence: None)
  Receive Date: 20130222
  Receipt Date: 20130222
  Transmission Date: 20140127
  Serious: Yes (Death)
  Sender: FDA-Public Use
  Company Number: 2013-00388

PATIENT
  Age: 71 Year
  Sex: Female

DRUGS (6)
  1. LISINOPRIL (UNKNOWN) (LISINOPRIL) [Suspect]
     Indication: PRODUCT USED FOR UNKNOWN INDICATION
  2. METFORMIN (UNKNOWN) [Suspect]
  3. SERTRALINE (UNKNOWN) (SERTRALINE) [Suspect]
  4. PROPRANOLOL [Suspect]
  5. ACETAMINOPHEN / OXYCODONE [Suspect]
  6. PREGABALIN [Suspect]

REACTIONS (1)
  - Completed suicide [None]
